FAERS Safety Report 6739524-0 (Version None)
Quarter: 2010Q2

REPORT INFORMATION
  Report Type: 
  Country: None (occurrence: None)
  Receive Date: 20100525
  Receipt Date: 20100519
  Transmission Date: 20101027
  Serious: Yes (Disabling, Other)
  Sender: FDA-Public Use
  Company Number: US-B.I. PHARMACEUTICALS,INC./RIDGEFIELD-2010-BP-05031BP

PATIENT
  Age: 71 Year
  Sex: Male

DRUGS (4)
  1. FLOMAX [Suspect]
     Indication: BENIGN PROSTATIC HYPERPLASIA
     Dosage: 0.8 MG
     Route: 048
     Dates: start: 20090806
  2. FLOMAX [Suspect]
     Dosage: 0.4 MG
     Route: 048
     Dates: end: 20090814
  3. ALPHA-BLOCKERS [Concomitant]
  4. RAPAFLO [Concomitant]

REACTIONS (4)
  - DISABILITY [None]
  - DIZZINESS [None]
  - LUNG NEOPLASM MALIGNANT [None]
  - VERTIGO CNS ORIGIN [None]
